FAERS Safety Report 10464010 (Version 5)
Quarter: 2014Q4

REPORT INFORMATION
  Report Type: Spontaneous
  Country: NL (occurrence: NL)
  Receive Date: 20140919
  Receipt Date: 20141105
  Transmission Date: 20150528
  Serious: Yes (Other)
  Sender: FDA-Public Use
  Company Number: NL-JNJFOC-20140901706

PATIENT
  Sex: Female

DRUGS (5)
  1. DAKTARIN [Suspect]
     Active Substance: MICONAZOLE NITRATE
     Route: 061
  2. BROXIL [Concomitant]
     Active Substance: PHENETHICILLIN POTASSIUM
     Dosage: 4X 1000 MG PARACETAMOL
     Route: 065
     Dates: start: 20140722, end: 20140920
  3. NORTRIPTYLINE [Concomitant]
     Active Substance: NORTRIPTYLINE
     Dosage: 4X 1000 MG PARACETAMOL
     Route: 048
     Dates: start: 20140909, end: 20141009
  4. DAKTARIN [Suspect]
     Active Substance: MICONAZOLE NITRATE
     Indication: NAIL INFECTION
     Route: 061
     Dates: start: 201408
  5. PARACETAMOL [Suspect]
     Active Substance: ACETAMINOPHEN
     Indication: PRODUCT USED FOR UNKNOWN INDICATION
     Dosage: 4X 1000 MG PARACETAMOL
     Route: 065

REACTIONS (3)
  - Localised infection [Recovered/Resolved]
  - Product quality issue [Recovered/Resolved]
  - Ingrowing nail [Unknown]
